FAERS Safety Report 8610834-5 (Version None)
Quarter: 2012Q3

REPORT INFORMATION
  Report Type: 
  Country: None (occurrence: None)
  Receive Date: 20120423
  Receipt Date: 20091102
  Transmission Date: 20120928
  Serious: Yes (Other)
  Sender: FDA-Public Use
  Company Number: PHEH2009US09859

PATIENT
  Sex: Female

DRUGS (1)
  1. FEMARA [Suspect]

REACTIONS (4)
  - MYOCARDIAL INFARCTION [None]
  - DIZZINESS [None]
  - HYPOAESTHESIA [None]
  - CARPAL TUNNEL SYNDROME [None]
